FAERS Safety Report 14720667 (Version 1)
Quarter: 2018Q1

REPORT INFORMATION
  Report Type: Spontaneous
  Country: US (occurrence: US)
  Receive Date: 20180330
  Receipt Date: 20180330
  Transmission Date: 20180509
  Serious: Yes (Hospitalization)
  Sender: FDA-Public Use
  Company Number: None

PATIENT
  Age: 74 Year
  Sex: Male
  Weight: 68.49 kg

DRUGS (10)
  1. LOVASTATIN. [Concomitant]
     Active Substance: LOVASTATIN
  2. ELIGARD [Concomitant]
     Active Substance: LEUPROLIDE ACETATE
  3. ALBUTEROL INHALER [Concomitant]
     Active Substance: ALBUTEROL
  4. ASPIRIN. [Concomitant]
     Active Substance: ASPIRIN
  5. CALCIUM PHOSPHATE [Concomitant]
     Active Substance: CALCIUM PHOSPHATE
  6. MULTIVITAMIN [Concomitant]
     Active Substance: VITAMINS
  7. LISINOPRIL. [Suspect]
     Active Substance: LISINOPRIL
  8. FUROSEMIDE. [Concomitant]
     Active Substance: FUROSEMIDE
  9. ENZALUTAMIDE (40MG) [Suspect]
     Active Substance: ENZALUTAMIDE
  10. HYDROCODONE BITARTRATE AND ACETAMINOPHEN [Concomitant]
     Active Substance: ACETAMINOPHEN\HYDROCODONE BITARTRATE

REACTIONS (2)
  - Fall [None]
  - Humerus fracture [None]

NARRATIVE: CASE EVENT DATE: 20180329
